FAERS Safety Report 25008942 (Version 1)
Quarter: 2025Q1

REPORT INFORMATION
  Report Type: Spontaneous
  Country: GB (occurrence: GB)
  Receive Date: 20250225
  Receipt Date: 20250225
  Transmission Date: 20250408
  Serious: Yes (Other)
  Sender: ABBVIE
  Company Number: None

PATIENT
  Age: 46 Year
  Sex: Female

DRUGS (1)
  1. ESCITALOPRAM OXALATE [Suspect]
     Active Substance: ESCITALOPRAM OXALATE
     Indication: Generalised anxiety disorder
     Route: 065

REACTIONS (3)
  - Intrusive thoughts [Not Recovered/Not Resolved]
  - Self-injurious ideation [Unknown]
  - Menstruation delayed [Unknown]
